FAERS Safety Report 7688085-0 (Version None)
Quarter: 2011Q3

REPORT INFORMATION
  Report Type: 
  Country: None (occurrence: None)
  Receive Date: 20110817
  Receipt Date: 20110811
  Transmission Date: 20111222
  Serious: Yes (Other)
  Sender: FDA-Public Use
  Company Number: US-AMGEN-USASP2011041162

PATIENT
  Age: 36 Year
  Sex: Female

DRUGS (5)
  1. ADRIAMYCIN PFS [Concomitant]
     Dosage: UNK UNK, Q2WK
     Route: 042
     Dates: start: 20110616
  2. RITUXAN [Concomitant]
     Dosage: UNK UNK, Q2WK
     Route: 042
     Dates: start: 20110616
  3. NEULASTA [Suspect]
     Indication: NEUTROPENIA
     Dosage: 6 MG, Q2WK
     Dates: start: 20110617
  4. TAXOL [Concomitant]
     Route: 042
  5. CYCLOPHOSPHAMIDE [Concomitant]
     Dosage: UNK UNK, Q2WK
     Route: 042

REACTIONS (3)
  - STAPHYLOCOCCAL INFECTION [None]
  - DRUG INEFFECTIVE [None]
  - WHITE BLOOD CELL COUNT DECREASED [None]
